FAERS Safety Report 7240219-8 (Version None)
Quarter: 2011Q1

REPORT INFORMATION
  Report Type: 
  Country: None (occurrence: None)
  Receive Date: 20110124
  Receipt Date: 20110113
  Transmission Date: 20110831
  Serious: Yes (Other)
  Sender: FDA-Public Use
  Company Number: SK-JNJFOC-20110104027

PATIENT
  Sex: Female
  Weight: 75.8 kg

DRUGS (6)
  1. PENTASA [Concomitant]
  2. INFLIXIMAB, RECOMBINANT [Suspect]
     Indication: COLITIS ULCERATIVE
     Route: 042
  3. INFLIXIMAB, RECOMBINANT [Suspect]
     Dosage: 15 INFUSIONS TOTAL
     Route: 042
  4. LEVOTHYROXINE SODIUM [Concomitant]
     Indication: AUTOIMMUNE THYROIDITIS
  5. PENTASA [Concomitant]
     Indication: COLITIS ULCERATIVE
  6. NOLPAZA [Concomitant]
     Indication: GASTROOESOPHAGEAL REFLUX DISEASE

REACTIONS (3)
  - INFUSION RELATED REACTION [None]
  - PALPITATIONS [None]
  - FACE OEDEMA [None]
